FAERS Safety Report 9129117 (Version 1)
Quarter: 2013Q1

REPORT INFORMATION
  Report Type: Spontaneous
  Country: US (occurrence: US)
  Receive Date: 20130125
  Receipt Date: 20130125
  Transmission Date: 20140127
  Serious: No
  Sender: FDA-Public Use
  Company Number: US-BRACCO-008534

PATIENT
  Age: 55 Year
  Sex: Female

DRUGS (2)
  1. MULTIHANCE [Suspect]
     Indication: NUCLEAR MAGNETIC RESONANCE IMAGING BRAIN
     Route: 042
     Dates: start: 20120904, end: 20120904
  2. MULTIHANCE [Suspect]
     Indication: DIZZINESS
     Route: 042
     Dates: start: 20120904, end: 20120904

REACTIONS (1)
  - Dysphagia [Recovered/Resolved]
